FAERS Safety Report 10337043 (Version 1)
Quarter: 2014Q3

REPORT INFORMATION
  Report Type: Report from Study
  Country: BR (occurrence: BR)
  Receive Date: 20140723
  Receipt Date: 20140723
  Transmission Date: 20150326
  Serious: Yes (Hospitalization)
  Sender: FDA-Public Use
  Company Number: BR-ABBVIE-14K-020-1261458-00

PATIENT
  Sex: Female
  Weight: 58 kg

DRUGS (1)
  1. HUMIRA [Suspect]
     Active Substance: ADALIMUMAB
     Indication: RHEUMATOID ARTHRITIS
     Route: 058
     Dates: start: 20140506

REACTIONS (5)
  - Dyspnoea [Recovering/Resolving]
  - Immunodeficiency [Unknown]
  - Acute respiratory distress syndrome [Recovering/Resolving]
  - Pneumonia [Recovering/Resolving]
  - Pleural effusion [Recovering/Resolving]
